FAERS Safety Report 22076193 (Version 1)
Quarter: 2023Q1

REPORT INFORMATION
  Report Type: Other
  Country: US (occurrence: None)
  Receive Date: 20230309
  Receipt Date: 20230309
  Transmission Date: 20230418
  Serious: Yes (Other)
  Sender: FDA-Public Use
  Company Number: US-ROCHE-3304187

PATIENT

DRUGS (1)
  1. CAPECITABINE [Suspect]
     Active Substance: CAPECITABINE
     Indication: Neoplasm malignant
     Route: 048

REACTIONS (1)
  - Enterocolitis [Unknown]
